FAERS Safety Report 4319691-9 (Version None)
Quarter: 2004Q1

REPORT INFORMATION
  Report Type: 
  Country: None (occurrence: None)
  Receive Date: 20040319
  Receipt Date: 20031016
  Transmission Date: 20041129
  Serious: Yes (Hospitalization, Disabling)
  Sender: FDA-Public Use
  Company Number: WAES 0310USA01959

PATIENT
  Age: 42 Year
  Sex: Female
  Weight: 80 kg

DRUGS (8)
  1. LIDOCAINE AND TRIAMCINOLONE ACETONIDE [Concomitant]
     Route: 051
     Dates: start: 20020315, end: 20020315
  2. GLUCOPHAGE XR [Concomitant]
     Route: 048
     Dates: start: 20010701, end: 20010801
  3. GLUCOPHAGE XR [Concomitant]
     Dates: start: 20010801
  4. GLUCOPHAGE XR [Concomitant]
     Route: 048
     Dates: start: 20020301
  5. VIOXX [Suspect]
     Indication: JOINT DISLOCATION
     Route: 048
     Dates: start: 20020222, end: 20020301
  6. VIOXX [Suspect]
     Route: 048
     Dates: start: 20020222, end: 20020301
  7. VIOXX [Suspect]
     Indication: JOINT INJURY
     Route: 048
     Dates: start: 20020222, end: 20020301
  8. VIOXX [Suspect]
     Route: 048
     Dates: start: 20020222, end: 20020301

REACTIONS (23)
  - ANEURYSM [None]
  - BLOOD GLUCOSE INCREASED [None]
  - CEREBROVASCULAR ACCIDENT [None]
  - CHEST PAIN [None]
  - DECREASED APPETITE [None]
  - DRUG INEFFECTIVE [None]
  - GASTRIC DISORDER [None]
  - HAEMOGLOBIN DECREASED [None]
  - HYPERTENSION [None]
  - JOINT DISLOCATION [None]
  - LABYRINTHITIS [None]
  - LOWER LIMB FRACTURE [None]
  - MITRAL VALVE INCOMPETENCE [None]
  - OVERDOSE [None]
  - PAIN [None]
  - PHARYNGOLARYNGEAL PAIN [None]
  - RHINORRHOEA [None]
  - SINUS DISORDER [None]
  - SINUSITIS [None]
  - TREATMENT NONCOMPLIANCE [None]
  - TRICUSPID VALVE INCOMPETENCE [None]
  - VENTRICULAR HYPERTROPHY [None]
  - WHITE BLOOD CELL COUNT INCREASED [None]
